FAERS Safety Report 5383624-7 (Version None)
Quarter: 2007Q3

REPORT INFORMATION
  Report Type: 
  Country: None (occurrence: None)
  Receive Date: 20070706
  Receipt Date: 20070629
  Transmission Date: 20080115
  Serious: Yes (Hospitalization, Other)
  Sender: FDA-Public Use
  Company Number: TCI2007A02554

PATIENT
  Age: 72 Year
  Sex: Female

DRUGS (11)
  1. LANSOPRAZOLE [Suspect]
     Indication: REFLUX OESOPHAGITIS
     Dosage: 60 MG (30 MG, 2 IN 1 D)
     Route: 042
     Dates: start: 20070518, end: 20070524
  2. TAKEPON (LANSOPRAZOLE) (TABLETS) [Suspect]
     Indication: REFLUX OESOPHAGITIS
     Dosage: 30 MG (30 MG, 1 IN 1 D) ORAL
     Route: 048
     Dates: start: 20070525, end: 20070531
  3. TAKEPON (LANSOPRAZOLE) (TABLETS) [Suspect]
     Indication: REFLUX OESOPHAGITIS
     Dosage: 30 MG (30 MG, 1 IN 1 D) ORAL
     Route: 048
     Dates: start: 20070601, end: 20070604
  4. UNASYN S (UNACID/00917901/INJECTION) [Suspect]
     Indication: INFECTION PROPHYLAXIS
     Dosage: 6 G (3 G, 2 IN 1 D) INTRAVENOUS
     Route: 042
     Dates: start: 20070518, end: 20070525
  5. SODIUM CHLORIDE INJ [Concomitant]
  6. POTASSIUM CHLORIDE [Concomitant]
  7. LASIX (FUROSEMIDE) (INJECTION) [Concomitant]
  8. BIOFERMIN R (STREPTOCOCCUS FAECALIS) (PREPARATION FOR ORAL USE (NOS)) [Concomitant]
  9. FRANDOL TAPE S (POULTICE OR PATCH) [Concomitant]
  10. VANCOMYCIN (VANCOMYCIN) (POWDER) [Concomitant]
  11. HOKUNALIN TAPE (TULOBUTEROL HYDROCHLORIDE) (POULTICE OR PATCH) [Concomitant]

REACTIONS (15)
  - CYANOSIS [None]
  - DIARRHOEA [None]
  - DISSEMINATED INTRAVASCULAR COAGULATION [None]
  - EXTRASYSTOLES [None]
  - FEEDING TUBE COMPLICATION [None]
  - HEART RATE INCREASED [None]
  - MOANING [None]
  - OEDEMA PERIPHERAL [None]
  - PLATELET COUNT DECREASED [None]
  - PNEUMONIA ASPIRATION [None]
  - SALIVARY HYPERSECRETION [None]
  - SEPSIS [None]
  - SWELLING FACE [None]
  - URINE OUTPUT DECREASED [None]
  - VENTRICULAR EXTRASYSTOLES [None]
